FAERS Safety Report 23771971 (Version 1)
Quarter: 2024Q2

REPORT INFORMATION
  Report Type: Report from Study
  Country: US (occurrence: US)
  Receive Date: 20240423
  Receipt Date: 20240423
  Transmission Date: 20240715
  Serious: Yes (Hospitalization)
  Sender: FDA-Public Use
  Company Number: US-ABBVIE-5641284

PATIENT
  Age: 51 Year
  Sex: Male

DRUGS (1)
  1. VENCLEXTA [Suspect]
     Active Substance: VENETOCLAX
     Indication: Chronic lymphocytic leukaemia
     Dosage: FORM STRENGTH: 100  MILLIGRAM?TAKE 4 TABLETS BY MOUTH ONCE DAILY
     Route: 048
     Dates: end: 2023

REACTIONS (2)
  - Coma [Recovering/Resolving]
  - West Nile viral infection [Unknown]

NARRATIVE: CASE EVENT DATE: 20230801
